FAERS Safety Report 25810040 (Version 1)
Quarter: 2025Q3

REPORT INFORMATION
  Report Type: Spontaneous
  Country: EU (occurrence: EU)
  Receive Date: 20250917
  Receipt Date: 20250917
  Transmission Date: 20251021
  Serious: Yes (Hospitalization, Other)
  Sender: CHEPLAPHARM
  Company Number: None

PATIENT
  Age: 30 Year
  Sex: Male

DRUGS (7)
  1. CLONAZEPAM [Suspect]
     Active Substance: CLONAZEPAM
     Indication: Anxiolytic therapy
     Route: 048
     Dates: start: 2018
  2. COCAINE [Suspect]
     Active Substance: COCAINE
     Indication: Anxiolytic therapy
     Dates: start: 2018
  3. COCAINE [Suspect]
     Active Substance: COCAINE
     Indication: Anxiolytic therapy
     Route: 055
     Dates: start: 2018
  4. CANNABIS SATIVA SUBSP. INDICA TOP [Suspect]
     Active Substance: CANNABIS SATIVA SUBSP. INDICA TOP
     Indication: Anxiolytic therapy
     Dates: start: 2007
  5. ALCOHOL [Suspect]
     Active Substance: ALCOHOL
     Indication: Anxiolytic therapy
     Route: 048
     Dates: start: 2018
  6. LAMOTRIGINE [Concomitant]
     Active Substance: LAMOTRIGINE
  7. PREGABALIN [Concomitant]
     Active Substance: PREGABALIN

REACTIONS (4)
  - Drug dependence [Not Recovered/Not Resolved]
  - Toxicity to various agents [Recovered/Resolved]
  - Abdominal pain [Recovered/Resolved]
  - Vomiting [Recovered/Resolved]

NARRATIVE: CASE EVENT DATE: 20250628
